FAERS Safety Report 4998808-7 (Version None)
Quarter: 2006Q2

REPORT INFORMATION
  Report Type: 
  Country: None (occurrence: None)
  Receive Date: 20060510
  Receipt Date: 20060503
  Transmission Date: 20061013
  Serious: Yes (Other)
  Sender: FDA-Public Use
  Company Number: AU-MERCK-0605AUS00057

PATIENT
  Age: 69 Year
  Sex: Female
  Weight: 60 kg

DRUGS (6)
  1. FOSAMAX [Suspect]
     Indication: BONE DISORDER
     Route: 048
  2. CALCIUM (UNSPECIFIED) [Concomitant]
     Indication: BONE DISORDER
     Route: 065
  3. NANDROLONE DECANOATE [Concomitant]
     Indication: BONE DISORDER
     Route: 065
  4. CALCITRIOL [Concomitant]
     Indication: BONE DISORDER
     Route: 065
  5. ATORVASTATIN CALCIUM [Concomitant]
     Indication: METABOLIC DISORDER
     Route: 065
  6. ACETAMINOPHEN AND PROPOXYPHENE HYDROCHLORIDE [Concomitant]
     Indication: PAIN
     Route: 065

REACTIONS (1)
  - OSTEONECROSIS [None]
